FAERS Safety Report 10885204 (Version 1)
Quarter: 2015Q1

REPORT INFORMATION
  Report Type: Spontaneous
  Country: US (occurrence: US)
  Receive Date: 20150304
  Receipt Date: 20150304
  Transmission Date: 20150721
  Serious: Yes (Death)
  Sender: FDA-Public Use
  Company Number: US-BANPHARM-20153621

PATIENT
  Age: 14 Year
  Sex: Female

DRUGS (4)
  1. DIPHENHYDRAMINE UNKNOWN PRODUCT [Suspect]
     Active Substance: DIPHENHYDRAMINE
  2. LOVASTATIN. [Suspect]
     Active Substance: LOVASTATIN
  3. METFORMIN [Suspect]
     Active Substance: METFORMIN HYDROCHLORIDE
  4. LORATADINE. [Suspect]
     Active Substance: LORATADINE

REACTIONS (2)
  - Completed suicide [Fatal]
  - Exposure via ingestion [None]
